FAERS Safety Report 24862278 (Version 2)
Quarter: 2025Q3

REPORT INFORMATION
  Report Type: Spontaneous
  Country: US (occurrence: US)
  Receive Date: 20250120
  Receipt Date: 20250808
  Transmission Date: 20251021
  Serious: No
  Sender: ROCHE
  Company Number: US-ROCHE-10000179462

PATIENT
  Sex: Male

DRUGS (2)
  1. HEMLIBRA [Suspect]
     Active Substance: EMICIZUMAB-KXWH
     Indication: Factor VIII deficiency
     Dosage: STRENGTH- 105MG/0.7ML
     Route: 058
     Dates: start: 202303
  2. AFSTYLA ANTIHEMOPHILIC FACTOR (RECOMBINANT), SINGLE CHAIN [Concomitant]
     Active Substance: LONOCTOCOG ALFA

REACTIONS (6)
  - Haemorrhage [Recovered/Resolved]
  - Limb injury [Unknown]
  - Injection site pain [Unknown]
  - Procedural anxiety [Unknown]
  - Weight decreased [Unknown]
  - Haemorrhage [Unknown]
